FAERS Safety Report 19934058 (Version 9)
Quarter: 2022Q2

REPORT INFORMATION
  Report Type: Report from Study
  Country: US (occurrence: US)
  Receive Date: 20211008
  Receipt Date: 20220622
  Transmission Date: 20220721
  Serious: No
  Sender: FDA-Public Use
  Company Number: US-NOVARTISTESTPH-NVSC2021US226870

PATIENT
  Age: 66 Year
  Sex: Female

DRUGS (7)
  1. ENTRESTO [Suspect]
     Active Substance: SACUBITRIL\VALSARTAN
     Indication: Product used for unknown indication
     Dosage: 1 DOSAGE FORM, BID, (24/26 MG)
     Route: 048
     Dates: start: 202108
  2. ENTRESTO [Suspect]
     Active Substance: SACUBITRIL\VALSARTAN
     Dosage: 1 DOSAGE FORM, BID (24/26 MG)
     Route: 048
  3. ENTRESTO [Suspect]
     Active Substance: SACUBITRIL\VALSARTAN
     Dosage: UNK
     Route: 048
  4. METFORMIN [Concomitant]
     Active Substance: METFORMIN HYDROCHLORIDE
     Indication: Diabetes mellitus
     Dosage: UNK
     Route: 065
  5. CYMBALTA [Concomitant]
     Active Substance: DULOXETINE HYDROCHLORIDE
     Indication: Diabetes mellitus
     Dosage: UNK
     Route: 065
  6. CYMBALTA [Concomitant]
     Active Substance: DULOXETINE HYDROCHLORIDE
     Indication: Nerve injury
  7. CRANBERRY [Concomitant]
     Active Substance: CRANBERRY
     Indication: Renal disorder
     Dosage: UNK
     Route: 065

REACTIONS (29)
  - Throat clearing [Unknown]
  - Stress [Unknown]
  - Heart rate increased [Recovering/Resolving]
  - Insomnia [Unknown]
  - Cardiac disorder [Unknown]
  - Chest pain [Unknown]
  - Weight decreased [Unknown]
  - Depression [Recovering/Resolving]
  - Retching [Unknown]
  - Blood glucose fluctuation [Unknown]
  - Blood pressure abnormal [Unknown]
  - Hypertension [Unknown]
  - Fear [Unknown]
  - Rhinorrhoea [Unknown]
  - Chills [Unknown]
  - Discomfort [Unknown]
  - Pain [Unknown]
  - Muscle spasms [Unknown]
  - Spinal disorder [Unknown]
  - Crying [Unknown]
  - Fatigue [Unknown]
  - Diarrhoea [Unknown]
  - Asthenia [Unknown]
  - Blood pressure decreased [Recovering/Resolving]
  - Cough [Unknown]
  - Multiple allergies [Unknown]
  - Nausea [Unknown]
  - Abdominal discomfort [Unknown]
  - Product dose omission issue [Unknown]

NARRATIVE: CASE EVENT DATE: 20220601
